FAERS Safety Report 4345609-9 (Version None)
Quarter: 2004Q2

REPORT INFORMATION
  Report Type: 
  Country: None (occurrence: None)
  Receive Date: 20040421
  Receipt Date: 20040413
  Transmission Date: 20050107
  Serious: Yes (Other)
  Sender: FDA-Public Use
  Company Number: 200403614

PATIENT
  Age: 51 Year
  Sex: Female

DRUGS (1)
  1. FLEXERIL [Suspect]
     Indication: MUSCLE RELAXANT THERAPY
     Dosage: 5 MG (FREQUENCY  UNK)
     Dates: end: 20040413

REACTIONS (2)
  - LOSS OF CONSCIOUSNESS [None]
  - ROAD TRAFFIC ACCIDENT [None]
